FAERS Safety Report 4577889-9 (Version None)
Quarter: 2005Q1

REPORT INFORMATION
  Report Type: 
  Country: None (occurrence: None)
  Receive Date: 20050209
  Receipt Date: 20050131
  Transmission Date: 20050727
  Serious: Yes (Other)
  Sender: FDA-Public Use
  Company Number: 2005-01-2290

PATIENT
  Age: 46 Year
  Sex: Male

DRUGS (2)
  1. BETAMETHASONE [Suspect]
     Indication: NON-HODGKIN'S LYMPHOMA
     Dosage: 8MG-DECREASE INTRAMUSCULAR
     Route: 030
     Dates: start: 20000101, end: 20000101
  2. PREDNISONE [Suspect]
     Indication: NON-HODGKIN'S LYMPHOMA
     Dosage: ORAL
     Route: 048
     Dates: start: 20000101, end: 20000101

REACTIONS (5)
  - EYE DISORDER [None]
  - METAMORPHOPSIA [None]
  - RETINAL DETACHMENT [None]
  - SCOTOMA [None]
  - VISION BLURRED [None]
